FAERS Safety Report 4714968-7 (Version None)
Quarter: 2005Q3

REPORT INFORMATION
  Report Type: 
  Country: None (occurrence: None)
  Receive Date: 20050713
  Receipt Date: 20050704
  Transmission Date: 20060218
  Serious: Yes (Other)
  Sender: FDA-Public Use
  Company Number: 2005095693

PATIENT
  Age: 52 Year
  Sex: Female
  Weight: 63 kg

DRUGS (10)
  1. FRAGMIN [Suspect]
     Indication: ANTICOAGULANT THERAPY
     Dosage: 5000 I.U. (5000 I.U., ONCE), SUBCUTANEOUS
     Route: 058
     Dates: start: 20050228, end: 20050315
  2. DICLOFENAC SODIUM [Suspect]
     Indication: ARTHROPATHY
     Dosage: (ONCE), ORAL
     Route: 047
     Dates: start: 20050228, end: 20050303
  3. STILNOX (ZOLPIDEM) [Suspect]
     Indication: SLEEP DISORDER
     Dosage: 10 MG (10 MG, ONCE), ORAL
     Route: 048
     Dates: start: 20050228, end: 20050303
  4. NAROPIN [Suspect]
     Indication: ILL-DEFINED DISORDER
     Dates: start: 20050228, end: 20050303
  5. ACETAMINOPHEN [Concomitant]
     Indication: ILL-DEFINED DISORDER
     Dosage: (1500 MG, QID), ORAL
     Route: 048
     Dates: start: 20050228, end: 20050303
  6. ELTROXIN (LEVOTHYROXINE SODIUM) [Concomitant]
  7. BUPIVACIANE HYDROCHLORIDE (BUPIVACAINE HYDROCHLORIDE0 [Concomitant]
  8. MEPIVACIAN E (MEPIVACAINE) [Concomitant]
  9. ULTIVA [Concomitant]
  10. PROPOFOL [Concomitant]

REACTIONS (8)
  - BLOOD BILIRUBIN INCREASED [None]
  - CHOLESTASIS [None]
  - CHROMATURIA [None]
  - IMPAIRED WORK ABILITY [None]
  - JAUNDICE CHOLESTATIC [None]
  - PRURITUS [None]
  - SLEEP DISORDER [None]
  - WEIGHT DECREASED [None]
